FAERS Safety Report 5311319-4 (Version None)
Quarter: 2007Q2

REPORT INFORMATION
  Report Type: 
  Country: None (occurrence: None)
  Receive Date: 20070430
  Receipt Date: 20070418
  Transmission Date: 20071010
  Serious: Yes (Hospitalization, Other)
  Sender: FDA-Public Use
  Company Number: PHEH2007US05863

PATIENT
  Age: 73 Year
  Sex: Female

DRUGS (1)
  1. ZELNORM [Suspect]
     Indication: CONSTIPATION
     Dosage: UNK, BID
     Route: 048
     Dates: start: 20020101, end: 20070418

REACTIONS (5)
  - CARDIAC DISORDER [None]
  - CORONARY ARTERY STENOSIS [None]
  - DYSPNOEA [None]
  - FLUID RETENTION [None]
  - HEART RATE IRREGULAR [None]
